FAERS Safety Report 25314659 (Version 2)
Quarter: 2025Q2

REPORT INFORMATION
  Report Type: Spontaneous
  Country: EG (occurrence: EG)
  Receive Date: 20250514
  Receipt Date: 20250521
  Transmission Date: 20250717
  Serious: Yes (Life-Threatening, Other)
  Sender: NOVO NORDISK
  Company Number: EG-NOVOPROD-1418344

PATIENT
  Age: 579 Month
  Sex: Female
  Weight: 95 kg

DRUGS (2)
  1. INSULIN HUMAN [Suspect]
     Active Substance: INSULIN HUMAN
     Indication: Diabetes mellitus
     Dosage: 60 IU, QD (40 IU MORNING, 20 IU NIGHT)
     Route: 058
  2. ACTRAPID [Suspect]
     Active Substance: INSULIN HUMAN
     Indication: Diabetes mellitus
     Dosage: 20 IU, QD (LUNCH)
     Route: 058

REACTIONS (1)
  - Neoplasm malignant [Unknown]
